FAERS Safety Report 13401513 (Version 1)
Quarter: 2017Q2

REPORT INFORMATION
  Report Type: Spontaneous
  Country: CH (occurrence: CH)
  Receive Date: 20170404
  Receipt Date: 20170404
  Transmission Date: 20170830
  Serious: Yes (Disabling, Other)
  Sender: FDA-Public Use
  Company Number: CH-PFIZER INC-2017138980

PATIENT
  Age: 51 Year
  Sex: Male

DRUGS (22)
  1. CALCIPARINE [Concomitant]
     Active Substance: HEPARIN CALCIUM
  2. TEMESTA [Suspect]
     Active Substance: LORAZEPAM
     Dosage: 3.5 MG, DAILY (1MG MORNING-AND 2.5MG IN THE EVENING + 1MG 2X/DAY PRN)
     Route: 048
     Dates: start: 20170218
  3. LAMICTAL [Suspect]
     Active Substance: LAMOTRIGINE
     Dosage: 200 MG, 1X/DAY
  4. ZOLPIDEM [Concomitant]
     Active Substance: ZOLPIDEM\ZOLPIDEM TARTRATE
  5. QUETIAPINE. [Suspect]
     Active Substance: QUETIAPINE
     Dosage: 25 MG, 3X/DAY
     Route: 048
     Dates: start: 20170221, end: 20170313
  6. QUETIAPINE. [Suspect]
     Active Substance: QUETIAPINE
     Dosage: 25 MG, 1X/DAY +  25MG PRN
     Dates: start: 20170218, end: 20170220
  7. ZEFFIX [Concomitant]
     Active Substance: LAMIVUDINE
  8. METAMUCIL /00091301/ [Concomitant]
     Active Substance: PSYLLIUM HUSK
  9. QUETIAPINE. [Suspect]
     Active Substance: QUETIAPINE
     Dosage: 25 MG, 1X/DAY
     Dates: end: 20170217
  10. ZIAGEN [Concomitant]
     Active Substance: ABACAVIR SULFATE
  11. QUANTALAN [Concomitant]
     Active Substance: CHOLESTYRAMINE
  12. ISENTRESS [Concomitant]
     Active Substance: RALTEGRAVIR POTASSIUM
  13. DEPAKINE CHRONO [Suspect]
     Active Substance: VALPROATE SODIUM
     Dosage: 1000 MG, 2X/DAY
     Route: 048
  14. ASPIRIN CARDIO [Concomitant]
     Active Substance: ASPIRIN
  15. NEXIUM [Concomitant]
     Active Substance: ESOMEPRAZOLE MAGNESIUM
  16. INTELENCE [Concomitant]
     Active Substance: ETRAVIRINE
  17. BUSCOPAN [Concomitant]
     Active Substance: BUTYLSCOPOLAMINE BROMIDE
  18. DAFALGAN [Concomitant]
     Active Substance: ACETAMINOPHEN
  19. TEMESTA [Suspect]
     Active Substance: LORAZEPAM
     Dosage: 1 MG, 3X/DAY + 0.5MG 2X/DAY AS NEEDED
     Dates: end: 20170217
  20. IMODIUM [Concomitant]
     Active Substance: LOPERAMIDE HYDROCHLORIDE
  21. VI-DE 3 [Concomitant]
     Active Substance: CHOLECALCIFEROL
  22. ESCITALOPRAM [Suspect]
     Active Substance: ESCITALOPRAM OXALATE
     Dosage: 10 MG, 1X/DAY
     Route: 048

REACTIONS (6)
  - Tremor [Recovering/Resolving]
  - Condition aggravated [Recovering/Resolving]
  - Psychomotor retardation [Recovered/Resolved]
  - Muscle rigidity [Recovered/Resolved]
  - Acute kidney injury [Unknown]
  - Somnolence [Recovered/Resolved]

NARRATIVE: CASE EVENT DATE: 20170308
